FAERS Safety Report 16808181 (Version 2)
Quarter: 2020Q1

REPORT INFORMATION
  Report Type: Report from Study
  Country: None (occurrence: US)
  Receive Date: 20190916
  Receipt Date: 20200106
  Transmission Date: 20200409
  Serious: Yes (Other)
  Sender: FDA-Public Use
  Company Number: US-ABBVIE-19K-163-2920039-00

PATIENT
  Sex: Female
  Weight: 90.8 kg

DRUGS (2)
  1. APRISO [Concomitant]
     Active Substance: MESALAMINE
     Indication: PRODUCT USED FOR UNKNOWN INDICATION
  2. HUMIRA [Suspect]
     Active Substance: ADALIMUMAB
     Indication: COLITIS ULCERATIVE
     Dosage: CITRATE FREE  (TWICE IN TWO MONTH)
     Route: 058

REACTIONS (3)
  - Dry eye [Unknown]
  - Eye irritation [Not Recovered/Not Resolved]
  - Visual impairment [Unknown]
